FAERS Safety Report 7643536 (Version 2)
Quarter: 2013Q2

REPORT INFORMATION
  Report Type: Report from Study
  Country: LT (occurrence: LT)
  Receive Date: 20101027
  Receipt Date: 20130405
  Transmission Date: 20140414
  Serious: Yes (Hospitalization)
  Sender: FDA-Public Use
  Company Number: LT-AMGEN-KDC412544

PATIENT
  Age: 62 Year
  Sex: Male

DRUGS (8)
  1. DENOSUMAB [Suspect]
     Indication: PROSTATE CANCER
     Dosage: UNK UNK, Q4WK
     Route: 058
     Dates: start: 20080613
  2. TRAMADOL [Concomitant]
     Dosage: 100 MG, TID
     Route: 048
     Dates: start: 20100126
  3. GABAPENTIN [Concomitant]
     Dosage: 300 MG, BID
     Route: 048
     Dates: start: 20100121
  4. TRIPTORELIN [Concomitant]
     Dosage: 3.75 MG, Q4WK
     Route: 030
     Dates: start: 20081128
  5. CYPROTERONE [Concomitant]
     Dosage: 50 MG, TID
     Route: 048
     Dates: start: 20081129
  6. CALCIUM [Concomitant]
  7. DIAZEPAM [Concomitant]
     Dosage: 10 MG, QD
     Route: 048
     Dates: start: 20100223
  8. FENTANYL [Concomitant]
     Dosage: UNK UNK, UNK
     Route: 062
     Dates: start: 20100402

REACTIONS (1)
  - Osteomyelitis [Recovered/Resolved]
